FAERS Safety Report 12857196 (Version 1)
Quarter: 2016Q4

REPORT INFORMATION
  Report Type: Spontaneous
  Country: US (occurrence: US)
  Receive Date: 20161018
  Receipt Date: 20161018
  Transmission Date: 20170207
  Serious: No
  Sender: FDA-Public Use
  Company Number: US-GLAXOSMITHKLINE-US2016GSK152098

PATIENT
  Age: 56 Year
  Sex: Female

DRUGS (2)
  1. BENZONATATE. [Concomitant]
     Active Substance: BENZONATATE
  2. VENTOLIN HFA [Suspect]
     Active Substance: ALBUTEROL SULFATE
     Indication: DYSPNOEA
     Dosage: 1 PUFF(S), UNK
     Route: 055
     Dates: start: 20161010

REACTIONS (6)
  - Incorrect product storage [Unknown]
  - Hypoaesthesia [Recovered/Resolved]
  - Device use error [Unknown]
  - Paraesthesia [Recovered/Resolved]
  - Hyperventilation [Recovered/Resolved]
  - Paraesthesia oral [Recovered/Resolved]

NARRATIVE: CASE EVENT DATE: 20161011
